FAERS Safety Report 5982975-2 (Version None)
Quarter: 2008Q4

REPORT INFORMATION
  Report Type: 
  Country: None (occurrence: None)
  Receive Date: 20081125
  Receipt Date: 20080108
  Transmission Date: 20090506
  Serious: Yes (Death, Life-Threatening, Other)
  Sender: FDA-Public Use
  Company Number: 2008MP000006

PATIENT

DRUGS (2)
  1. GLIADEL [Suspect]
     Indication: BRAIN NEOPLASM
     Dosage: 1X;ICER
  2. TEMOZOLOMIDE [Suspect]
     Indication: BRAIN NEOPLASM
     Dosage: PO
     Route: 048

REACTIONS (10)
  - CONVULSION [None]
  - DRUG ADMINISTRATION ERROR [None]
  - DYSPNOEA [None]
  - LIVER DISORDER [None]
  - MULTI-ORGAN FAILURE [None]
  - NAUSEA [None]
  - OFF LABEL USE [None]
  - PULMONARY EMBOLISM [None]
  - THROMBOCYTOPENIA [None]
  - VOMITING [None]
